FAERS Safety Report 9983165 (Version 1)
Quarter: 2014Q1

REPORT INFORMATION
  Report Type: Report from Study
  Country: US (occurrence: US)
  Receive Date: 20140307
  Receipt Date: 20140307
  Transmission Date: 20141002
  Serious: No
  Sender: FDA-Public Use
  Company Number: US-ABBVIE-13P-163-1178085-00

PATIENT
  Age: 46 Year
  Sex: Female

DRUGS (8)
  1. HUMIRA [Suspect]
     Indication: CROHN^S DISEASE
     Dosage: DAY 1
     Route: 058
     Dates: start: 20131121
  2. HUMIRA [Suspect]
     Dosage: DAY 15
     Route: 058
  3. HUMIRA [Suspect]
     Route: 058
  4. BYSTOLIC [Concomitant]
     Indication: HYPERTENSION
     Route: 048
  5. ESTROGEN [Concomitant]
     Indication: PRODUCT USED FOR UNKNOWN INDICATION
     Dosage: 0.625/1.25 MG
     Route: 048
  6. PREDNISONE [Concomitant]
     Indication: PRODUCT USED FOR UNKNOWN INDICATION
  7. CYMBALTA [Concomitant]
     Indication: PRODUCT USED FOR UNKNOWN INDICATION
     Dosage: AT BEDTIME
     Route: 048
  8. BRISDELLE [Concomitant]
     Indication: HOT FLUSH
     Dosage: AT BEDTIME
     Route: 048

REACTIONS (6)
  - Fatigue [Not Recovered/Not Resolved]
  - Pharyngeal oedema [Not Recovered/Not Resolved]
  - Pain in extremity [Not Recovered/Not Resolved]
  - Arthralgia [Not Recovered/Not Resolved]
  - Myalgia [Not Recovered/Not Resolved]
  - Cough [Not Recovered/Not Resolved]
